FAERS Safety Report 7734482-4 (Version None)
Quarter: 2011Q3

REPORT INFORMATION
  Report Type: 
  Country: None (occurrence: None)
  Receive Date: 20110907
  Receipt Date: 20110905
  Transmission Date: 20111222
  Serious: Yes (Hospitalization)
  Sender: FDA-Public Use
  Company Number: US-GLAXOSMITHKLINE-A0802177A

PATIENT
  Age: 54 Year
  Sex: Female
  Weight: 86.6 kg

DRUGS (8)
  1. LIPITOR [Concomitant]
  2. LISINOPRIL [Concomitant]
  3. AVANDIA [Suspect]
     Indication: TYPE 2 DIABETES MELLITUS
     Dosage: 4MG PER DAY
     Dates: start: 20030324, end: 20071228
  4. ASPIRIN [Concomitant]
  5. METFORMIN HCL [Concomitant]
  6. VYTORIN [Concomitant]
  7. HYDROCHLOROTHIAZIDE [Concomitant]
  8. GLUCOPHAGE [Concomitant]

REACTIONS (1)
  - CEREBROVASCULAR ACCIDENT [None]
